FAERS Safety Report 8231674-5 (Version None)
Quarter: 2012Q1

REPORT INFORMATION
  Report Type: 
  Country: None (occurrence: None)
  Receive Date: 20120323
  Receipt Date: 20120313
  Transmission Date: 20120608
  Serious: Yes (Life-Threatening, Hospitalization)
  Sender: FDA-Public Use
  Company Number: DE-MILLENNIUM PHARMACEUTICALS, INC.-2012-01421

PATIENT

DRUGS (8)
  1. DEXAMETHASONE [Suspect]
     Dosage: 120 MG, UNK
     Route: 065
     Dates: start: 20120109, end: 20120113
  2. FILGRASTIM [Concomitant]
     Dosage: UNK
     Dates: start: 20120119
  3. CYCLOPHOSPHAMIDE [Suspect]
     Dosage: 2000 MG, UNK
     Route: 065
     Dates: start: 20120109, end: 20120113
  4. DOXORUBICIN HCL [Suspect]
     Indication: MULTIPLE MYELOMA
     Dosage: 120 MG, UNK
     Route: 065
     Dates: start: 20120109, end: 20120113
  5. REVLIMID [Suspect]
     Indication: MULTIPLE MYELOMA
     Route: 065
  6. VELCADE [Suspect]
     Indication: MULTIPLE MYELOMA
     Dosage: UNK
     Route: 065
     Dates: start: 20111101, end: 20111118
  7. CYCLOPHOSPHAMIDE [Suspect]
     Indication: MULTIPLE MYELOMA
     Route: 065
  8. DEXAMETHASONE [Suspect]
     Indication: MULTIPLE MYELOMA
     Route: 065

REACTIONS (1)
  - CONVULSION [None]
